FAERS Safety Report 23344688 (Version 1)
Quarter: 2023Q4

REPORT INFORMATION
  Report Type: Spontaneous
  Country: JP (occurrence: JP)
  Receive Date: 20231228
  Receipt Date: 20231228
  Transmission Date: 20240110
  Serious: Yes (Death)
  Sender: FDA-Public Use
  Company Number: JP-NBI-BJ202310450

PATIENT
  Age: 82 Year
  Sex: Female

DRUGS (1)
  1. OFEV [Suspect]
     Active Substance: NINTEDANIB
     Indication: Interstitial lung disease
     Route: 048
     Dates: start: 20230607, end: 20230614

REACTIONS (4)
  - Death [Fatal]
  - Liver function test abnormal [Recovered/Resolved]
  - Blood potassium increased [Not Recovered/Not Resolved]
  - Dyspnoea [Not Recovered/Not Resolved]

NARRATIVE: CASE EVENT DATE: 20230614
